FAERS Safety Report 8856615 (Version 1)
Quarter: 2012Q4

REPORT INFORMATION
  Report Type: Spontaneous
  Country: US (occurrence: None)
  Receive Date: 20121019
  Receipt Date: 20121019
  Transmission Date: 20130627
  Serious: Yes (Disabling)
  Sender: FDA-Public Use
  Company Number: 1452689

PATIENT

DRUGS (1)
  1. (BUPIVACAINE HYDROCHLORIDE) [Suspect]
     Indication: REGIONAL NERVE BLOCK
     Dosage: 30 mL,UNKNOWN, other

REACTIONS (1)
  - Sensory disturbance [None]
